FAERS Safety Report 4788507-9 (Version None)
Quarter: 2005Q4

REPORT INFORMATION
  Report Type: 
  Country: None (occurrence: None)
  Receive Date: 20051005
  Receipt Date: 20051005
  Transmission Date: 20060501
  Serious: Yes (Hospitalization)
  Sender: FDA-Public Use
  Company Number: None

PATIENT
  Age: 59 Year
  Sex: Female

DRUGS (11)
  1. ASPIRIN [Suspect]
     Indication: ANTICOAGULANT THERAPY
     Dosage: 81 MG PO QD
     Route: 048
  2. AMIODARONE [Concomitant]
  3. COLACE [Concomitant]
  4. DIGOXIN [Concomitant]
  5. FOLIC ACID [Concomitant]
  6. METOPROLOL [Concomitant]
  7. GABAPENTIN [Concomitant]
  8. CLOPIDOGREL [Concomitant]
  9. PRAVASTATIN [Concomitant]
  10. LANSOPAZOLE [Concomitant]
  11. WARFARIN SODIUM [Concomitant]

REACTIONS (2)
  - EYE SWELLING [None]
  - SWELLING FACE [None]
